FAERS Safety Report 12310760 (Version 1)
Quarter: 2016Q2

REPORT INFORMATION
  Report Type: Spontaneous
  Country: CN (occurrence: CN)
  Receive Date: 20160427
  Receipt Date: 20160427
  Transmission Date: 20160815
  Serious: Yes (Other)
  Sender: FDA-Public Use
  Company Number: PHHY2016CN054520

PATIENT
  Age: 32 Year
  Sex: Male

DRUGS (1)
  1. SEBIVO [Suspect]
     Active Substance: TELBIVUDINE
     Indication: PRODUCT USED FOR UNKNOWN INDICATION
     Dosage: 1 DF, QD
     Route: 048
     Dates: start: 201505

REACTIONS (3)
  - Fracture delayed union [Unknown]
  - Comminuted fracture [Unknown]
  - Blood creatine phosphokinase increased [Unknown]
